FAERS Safety Report 20932360 (Version 1)
Quarter: 2022Q2

REPORT INFORMATION
  Report Type: Spontaneous
  Country: US (occurrence: None)
  Receive Date: 20220608
  Receipt Date: 20220608
  Transmission Date: 20220721
  Serious: No
  Sender: FDA-Public Use
  Company Number: US-ROCHE-2932065

PATIENT
  Sex: Male

DRUGS (1)
  1. ACTEMRA [Suspect]
     Active Substance: TOCILIZUMAB
     Indication: Juvenile idiopathic arthritis
     Route: 065

REACTIONS (5)
  - Poor quality product administered [Unknown]
  - Pyrexia [Unknown]
  - Rash [Unknown]
  - Drug ineffective [Unknown]
  - Malaise [Unknown]
